FAERS Safety Report 6618431-8 (Version None)
Quarter: 2010Q1

REPORT INFORMATION
  Report Type: 
  Country: None (occurrence: None)
  Receive Date: 20100308
  Receipt Date: 20100226
  Transmission Date: 20100710
  Serious: Yes (Other)
  Sender: FDA-Public Use
  Company Number: NZ-ABBOTT-08P-118-0492757-00

PATIENT
  Sex: Female

DRUGS (2)
  1. REDUCTIL [Suspect]
     Indication: DRUG USE FOR UNKNOWN INDICATION
     Dates: start: 20081001, end: 20081121
  2. REDUCTIL [Suspect]
     Dates: start: 20081121

REACTIONS (1)
  - ECTOPIC PREGNANCY [None]
